FAERS Safety Report 25190623 (Version 1)
Quarter: 2025Q2

REPORT INFORMATION
  Report Type: Spontaneous
  Country: US (occurrence: US)
  Receive Date: 20250411
  Receipt Date: 20250411
  Transmission Date: 20250717
  Serious: Yes (Hospitalization, Other)
  Sender: JOHNSON AND JOHNSON
  Company Number: US-JNJFOC-20250403969

PATIENT
  Sex: Male

DRUGS (2)
  1. CARVYKTI [Suspect]
     Active Substance: CILTACABTAGENE AUTOLEUCEL
     Indication: Plasma cell myeloma
     Route: 065
     Dates: start: 20250107, end: 202502
  2. DEXAMETHASONE [Concomitant]
     Active Substance: DEXAMETHASONE
     Dates: start: 20250325, end: 20250327

REACTIONS (3)
  - Plasma cell myeloma [Unknown]
  - Parkinsonism [Unknown]
  - Myositis [Unknown]
